FAERS Safety Report 18156827 (Version 2)
Quarter: 2020Q3

REPORT INFORMATION
  Report Type: Spontaneous
  Country: TR (occurrence: TR)
  Receive Date: 20200817
  Receipt Date: 20200819
  Transmission Date: 20201103
  Serious: Yes (Death, Other)
  Sender: FDA-Public Use
  Company Number: TR-PFIZER INC-2020313417

PATIENT
  Age: 35 Year
  Sex: Female

DRUGS (23)
  1. PLAQUENIL [Suspect]
     Active Substance: HYDROXYCHLOROQUINE SULFATE
     Indication: PNEUMONIA
  2. FAVIPIRAVIR [Suspect]
     Active Substance: FAVIPIRAVIR
     Indication: COVID-19
     Dosage: 200 MG
     Route: 048
  3. CEFTRIAXONE. [Suspect]
     Active Substance: CEFTRIAXONE
     Indication: SYSTEMIC INFLAMMATORY RESPONSE SYNDROME
  4. FAVIPIRAVIR [Suspect]
     Active Substance: FAVIPIRAVIR
     Indication: PNEUMONIA
  5. FAVIPIRAVIR [Suspect]
     Active Substance: FAVIPIRAVIR
     Indication: SYSTEMIC INFLAMMATORY RESPONSE SYNDROME
  6. INSULIN [Suspect]
     Active Substance: INSULIN NOS
     Indication: GESTATIONAL DIABETES
     Dosage: UNK
  7. ENFLUVIR [Suspect]
     Active Substance: OSELTAMIVIR PHOSPHATE
     Indication: PNEUMONIA
  8. PLAQUENIL [Suspect]
     Active Substance: HYDROXYCHLOROQUINE SULFATE
     Indication: COVID-19
     Dosage: 200 MG
     Route: 048
  9. PIPERACILLIN. [Suspect]
     Active Substance: PIPERACILLIN SODIUM
     Indication: SYSTEMIC INFLAMMATORY RESPONSE SYNDROME
  10. PLAQUENIL [Suspect]
     Active Substance: HYDROXYCHLOROQUINE SULFATE
     Indication: SYSTEMIC INFLAMMATORY RESPONSE SYNDROME
  11. PIPERACILLIN. [Suspect]
     Active Substance: PIPERACILLIN SODIUM
     Indication: PNEUMONIA
  12. AZITHROMYCIN ANHYDROUS. [Suspect]
     Active Substance: AZITHROMYCIN ANHYDROUS
     Indication: COVID-19
     Dosage: 500 MG
     Route: 048
  13. AZITHROMYCIN ANHYDROUS. [Suspect]
     Active Substance: AZITHROMYCIN ANHYDROUS
     Indication: PNEUMONIA
  14. METHYLPREDNISOLONE ACETATE. [Suspect]
     Active Substance: METHYLPREDNISOLONE ACETATE
     Indication: COVID-19
     Dosage: 40 MG
     Route: 030
  15. ENFLUVIR [Suspect]
     Active Substance: OSELTAMIVIR PHOSPHATE
     Indication: COVID-19
     Dosage: 75 MG
     Route: 048
  16. ENOXAPARIN [Suspect]
     Active Substance: ENOXAPARIN
     Indication: PNEUMONIA
  17. CEFTRIAXONE. [Suspect]
     Active Substance: CEFTRIAXONE
     Indication: COVID-19
     Dosage: 1 G
     Route: 042
  18. CEFTRIAXONE. [Suspect]
     Active Substance: CEFTRIAXONE
     Indication: PNEUMONIA
  19. ENOXAPARIN [Suspect]
     Active Substance: ENOXAPARIN
     Indication: COVID-19
     Dosage: UNK (0.6)
     Route: 058
  20. METHYLPREDNISOLONE ACETATE. [Suspect]
     Active Substance: METHYLPREDNISOLONE ACETATE
     Indication: PNEUMONIA
  21. ENFLUVIR [Suspect]
     Active Substance: OSELTAMIVIR PHOSPHATE
     Indication: SYSTEMIC INFLAMMATORY RESPONSE SYNDROME
  22. PIPERACILLIN. [Suspect]
     Active Substance: PIPERACILLIN SODIUM
     Indication: COVID-19
     Dosage: 4.5 G
     Route: 042
  23. ENOXAPARIN [Suspect]
     Active Substance: ENOXAPARIN
     Indication: SYSTEMIC INFLAMMATORY RESPONSE SYNDROME

REACTIONS (3)
  - Drug ineffective for unapproved indication [Fatal]
  - Off label use [Unknown]
  - Maternal exposure during pregnancy [Unknown]
